FAERS Safety Report 7539823-9 (Version None)
Quarter: 2011Q2

REPORT INFORMATION
  Report Type: 
  Country: None (occurrence: None)
  Receive Date: 20110610
  Receipt Date: 20110607
  Transmission Date: 20111010
  Serious: Yes (Hospitalization)
  Sender: FDA-Public Use
  Company Number: US-B.I. PHARMACEUTICALS,INC./RIDGEFIELD-2011-BP-14853BP

PATIENT
  Age: 54 Year
  Sex: Female

DRUGS (20)
  1. SPIRIVA [Suspect]
     Indication: CHRONIC OBSTRUCTIVE PULMONARY DISEASE
     Dosage: 18 MCG
     Route: 055
     Dates: start: 20070101
  2. PREDNISONE [Concomitant]
     Indication: LUNG NEOPLASM MALIGNANT
  3. MULTAQ [Concomitant]
     Indication: ATRIAL FIBRILLATION
  4. ZOFRAN [Concomitant]
     Indication: NAUSEA
  5. FENTANYL-100 [Concomitant]
     Indication: BACK PAIN
     Dosage: 75 MG
  6. ZOLOFT [Concomitant]
     Indication: DEPRESSION
     Dosage: 100 MG
  7. PREDNISONE [Concomitant]
     Indication: CHRONIC OBSTRUCTIVE PULMONARY DISEASE
     Dosage: 5 MG
  8. DEXAMETHASONE [Concomitant]
     Indication: LUNG NEOPLASM MALIGNANT
     Dosage: 4 MG
  9. NITROSTAT [Concomitant]
     Indication: CARDIAC DISORDER
  10. MIRALAX [Concomitant]
     Indication: CONSTIPATION
  11. BUSPAR [Concomitant]
     Indication: DEPRESSION
  12. ZOFRAN [Concomitant]
     Indication: IMPAIRED GASTRIC EMPTYING
  13. LASIX [Concomitant]
     Indication: CARDIAC DISORDER
     Dosage: 20 MG
  14. PRADAXA [Concomitant]
     Indication: ATRIAL FIBRILLATION
     Dosage: 150 MG
     Route: 048
     Dates: start: 20110527, end: 20110601
  15. MEGACE [Concomitant]
     Indication: DECREASED APPETITE
  16. ASPIRIN [Concomitant]
     Indication: ATRIAL FIBRILLATION
     Dosage: 81 MG
  17. OMEPRAZOLE [Concomitant]
     Indication: IMPAIRED GASTRIC EMPTYING
  18. VICODIN [Concomitant]
     Indication: BACK PAIN
  19. FLUTICORT [Concomitant]
     Indication: HYPOTENSION
  20. ALBUTEROL SULFATE AUTOHALER [Concomitant]
     Indication: CHRONIC OBSTRUCTIVE PULMONARY DISEASE

REACTIONS (2)
  - GASTROPARESIS POSTOPERATIVE [None]
  - ORAL FUNGAL INFECTION [None]
